FAERS Safety Report 18073897 (Version 1)
Quarter: 2020Q3

REPORT INFORMATION
  Report Type: Report from Study
  Country: US (occurrence: US)
  Receive Date: 20200727
  Receipt Date: 20200727
  Transmission Date: 20201103
  Serious: Yes (Death, Other)
  Sender: FDA-Public Use
  Company Number: US-PFIZER INC-2020281453

PATIENT

DRUGS (7)
  1. CYTARABINE. [Suspect]
     Active Substance: CYTARABINE
     Dosage: 1000 MG/M2/DOSE EVERY 12 H DAYS 1?5 DURING INTENSIFICATION 1
     Route: 042
  2. ETOPOSIDE. [Suspect]
     Active Substance: ETOPOSIDE
     Indication: ACUTE MYELOID LEUKAEMIA
     Dosage: 100 MG/M?/DOSE IV DAYS 1?5 DURING INDUCTION 1
     Route: 042
  3. DAUNORUBICIN [Suspect]
     Active Substance: DAUNORUBICIN
     Indication: ACUTE MYELOID LEUKAEMIA
     Dosage: 50 MG/M?/DOSE DAYS 1, 3, 5 DURING INDUCTION 1
     Route: 042
  4. CYTARABINE. [Suspect]
     Active Substance: CYTARABINE
     Indication: ACUTE MYELOID LEUKAEMIA
     Dosage: 100 MG/M2/DOSE EVERY 12 H DAYS 1?10 DURING INDUCTION 1
     Route: 042
  5. CYTARABINE. [Suspect]
     Active Substance: CYTARABINE
     Dosage: 1000 MG/M2/DOSE EVERY 12 H DAYS 1?4 DURING INDUCTION 2
     Route: 042
  6. ETOPOSIDE. [Suspect]
     Active Substance: ETOPOSIDE
     Dosage: 150 MG/M?/DOSE DAYS 1?5 DURING INTENSIFICATION 1
     Route: 042
  7. MITOXANTRONE HCL [Suspect]
     Active Substance: MITOXANTRONE HYDROCHLORIDE
     Indication: ACUTE MYELOID LEUKAEMIA
     Dosage: 12 MG/M?/DOSE DAYS 3?6 DURING INDUCTION 2
     Route: 042

REACTIONS (3)
  - Left ventricular dysfunction [Fatal]
  - Cardiac failure [Fatal]
  - Candida sepsis [Unknown]
